FAERS Safety Report 20429563 (Version 1)
Quarter: 2022Q1

REPORT INFORMATION
  Report Type: Report from Study
  Country: FR (occurrence: FR)
  Receive Date: 20220204
  Receipt Date: 20220204
  Transmission Date: 20220424
  Serious: Yes (Life-Threatening, Hospitalization)
  Sender: FDA-Public Use
  Company Number: FRA201900908

PATIENT

DRUGS (7)
  1. PEGASPARGASE [Suspect]
     Active Substance: PEGASPARGASE
     Indication: Acute lymphocytic leukaemia
     Dosage: 1800 IU, QD
     Route: 042
     Dates: start: 20190921, end: 20190921
  2. TN UNSPECIFIED [Concomitant]
     Indication: Acute lymphocytic leukaemia
     Dosage: 1.1 MG ON D8 AND D15
     Route: 042
     Dates: start: 20190917
  3. TN UNSPECIFIED [Concomitant]
     Indication: Acute lymphocytic leukaemia
     Dosage: 21 MG ON D8 AND D15
     Route: 042
     Dates: start: 20190917
  4. TN UNSPECIFIED [Concomitant]
     Indication: Acute lymphocytic leukaemia
     Dosage: 12 MG ON D1 (PREPHASE), D9, D13, D18. D24
     Route: 037
     Dates: start: 20190910
  5. TN UNSPECIFIED [Concomitant]
     Indication: Acute lymphocytic leukaemia
     Dosage: 30 MG ON D13
     Route: 037
     Dates: start: 20190918
  6. TN UNSPECIFIED [Concomitant]
     Indication: Acute lymphocytic leukaemia
     Dosage: 15 MG ON D9, D13 AND D18
     Route: 037
     Dates: start: 20190918
  7. TN UNSPECIFIED [Concomitant]
     Indication: Acute lymphocytic leukaemia
     Dosage: 44 MG, FROM D1
     Route: 042
     Dates: start: 20190910

REACTIONS (2)
  - Pseudomonal sepsis [Recovered/Resolved]
  - Soft tissue necrosis [Recovered/Resolved]

NARRATIVE: CASE EVENT DATE: 20190928
